FAERS Safety Report 11138985 (Version 1)
Quarter: 2015Q2

REPORT INFORMATION
  Report Type: Report from Study
  Country: CZ (occurrence: CZ)
  Receive Date: 20150527
  Receipt Date: 20150527
  Transmission Date: 20150821
  Serious: Yes (Hospitalization)
  Sender: FDA-Public Use
  Company Number: CZ-EISAI MEDICAL RESEARCH-EC-2015-007004

PATIENT
  Age: 63 Year
  Sex: Female
  Weight: 61 kg

DRUGS (2)
  1. HALAVEN [Suspect]
     Active Substance: ERIBULIN MESYLATE
     Indication: BREAST CANCER
     Route: 041
     Dates: start: 20140514, end: 2014
  2. HALAVEN [Suspect]
     Active Substance: ERIBULIN MESYLATE
     Dosage: UNKNOWN
     Route: 041
     Dates: start: 2014, end: 20140910

REACTIONS (1)
  - Neutropenia [Recovered/Resolved]

NARRATIVE: CASE EVENT DATE: 20140525
